FAERS Safety Report 6596790-2 (Version None)
Quarter: 2010Q1

REPORT INFORMATION
  Report Type: 
  Country: None (occurrence: None)
  Receive Date: 20100222
  Receipt Date: 20100222
  Transmission Date: 20100710
  Serious: Yes (Hospitalization)
  Sender: FDA-Public Use
  Company Number: None

PATIENT
  Age: 72 Year
  Sex: Female
  Weight: 64.8644 kg

DRUGS (2)
  1. ACTONEL [Suspect]
     Indication: OSTEOPOROSIS
     Dosage: 2002-2007-35MG 1 A WEEK
  2. ACTONEL [Suspect]
     Dosage: 3/2009-9/09 - 150 MG 1 A MONTH

REACTIONS (2)
  - FEMUR FRACTURE [None]
  - STRESS FRACTURE [None]
